FAERS Safety Report 21639960 (Version 1)
Quarter: 2022Q4

REPORT INFORMATION
  Report Type: Spontaneous
  Country: CZ (occurrence: CZ)
  Receive Date: 20221124
  Receipt Date: 20221124
  Transmission Date: 20230113
  Serious: Yes (Hospitalization, Other)
  Sender: FDA-Public Use
  Company Number: CZ-AstraZeneca-2022A214268

PATIENT
  Age: 66 Year
  Sex: Male
  Weight: 85 kg

DRUGS (7)
  1. THEOPHYLLINE ANHYDROUS [Suspect]
     Active Substance: THEOPHYLLINE ANHYDROUS
     Indication: Dyspnoea
     Dosage: 400 MG PER DAY
     Route: 065
  2. THEOPHYLLINE ANHYDROUS [Suspect]
     Active Substance: THEOPHYLLINE ANHYDROUS
     Dosage: 600 MG/DAY
     Route: 065
  3. BISOPROLOL [Concomitant]
     Active Substance: BISOPROLOL
     Indication: Atrial tachycardia
     Dosage: UNK
  4. POTASSIUM CHLORIDE [Concomitant]
     Active Substance: POTASSIUM CHLORIDE
     Indication: Hypokalaemia
     Dosage: UNK
  5. AMIODARONE [Concomitant]
     Active Substance: AMIODARONE
     Indication: Atrial tachycardia
     Dosage: UNK
  6. IVABRADINE [Concomitant]
     Active Substance: IVABRADINE
     Indication: Atrial tachycardia
     Dosage: 10 MG/ DAY
  7. METOPROLOL [Concomitant]
     Active Substance: METOPROLOL
     Indication: Hypertension
     Dosage: 50 MG, BID (2/DAY)

REACTIONS (14)
  - Electrolyte imbalance [Unknown]
  - Cardiac dysfunction [Recovered/Resolved]
  - Cardiac failure [Unknown]
  - Hyponatraemia [Recovered/Resolved]
  - Intestinal polyp [Unknown]
  - Alkalosis [Unknown]
  - Circulatory collapse [Recovered/Resolved]
  - Hypochloraemia [Recovered/Resolved]
  - Atrial tachycardia [Recovered/Resolved]
  - Circulatory collapse [Unknown]
  - Oxygen saturation decreased [Unknown]
  - Decreased appetite [Unknown]
  - Hypokalaemia [Recovered/Resolved]
  - Nausea [Unknown]
